FAERS Safety Report 9345900 (Version 2)
Quarter: 2013Q4

REPORT INFORMATION
  Report Type: Spontaneous
  Country: FR (occurrence: FR)
  Receive Date: 20130613
  Receipt Date: 20131128
  Transmission Date: 20140711
  Serious: Yes (Hospitalization)
  Sender: FDA-Public Use
  Company Number: FR-009507513-1306FRA001826

PATIENT
  Age: 77 Year
  Sex: Male

DRUGS (9)
  1. TIENAM 500MG/500MG, POUDRE POUR PERFUSION [Suspect]
     Indication: NOCARDIOSIS
     Dosage: 500 MG, TID
     Route: 042
     Dates: start: 20130201, end: 20130301
  2. TIENAM 500MG/500MG, POUDRE POUR PERFUSION [Suspect]
     Dosage: 1 DF, TID
     Route: 042
     Dates: start: 20130321, end: 20130409
  3. CLAMOXYL [Suspect]
     Indication: NOCARDIOSIS
     Dosage: 2 G, QID
     Route: 048
     Dates: start: 20130409, end: 20130723
  4. ADVAGRAF [Concomitant]
     Dosage: 2 MG, UNK
     Route: 048
  5. CELLCEPT [Concomitant]
     Dosage: 500 MG, BID
     Route: 048
  6. CORTANCYL [Concomitant]
     Dosage: 100 MG, QD
     Route: 048
  7. ROVALCYTE [Concomitant]
     Indication: CYTOMEGALOVIRUS INFECTION
     Dosage: 450 MG, BID
     Route: 048
  8. KARDEGIC [Concomitant]
     Dosage: 75 MG, QD
     Route: 048
  9. BACTRIM FORTE [Concomitant]
     Dosage: 0.5 DF, TIW
     Route: 048

REACTIONS (3)
  - Cholestasis [Recovered/Resolved]
  - Jaundice cholestatic [Recovered/Resolved with Sequelae]
  - Hepatocellular injury [Recovered/Resolved with Sequelae]
